FAERS Safety Report 10043194 (Version 1)
Quarter: 2014Q1

REPORT INFORMATION
  Report Type: Spontaneous
  Country: US (occurrence: None)
  Receive Date: 20140327
  Receipt Date: 20140327
  Transmission Date: 20141002
  Serious: Yes (Other)
  Sender: FDA-Public Use
  Company Number: None

PATIENT
  Age: 43 Year
  Sex: Male
  Weight: 79.38 kg

DRUGS (2)
  1. BACLOFEN [Suspect]
     Indication: MUSCLE TIGHTNESS
     Dosage: TAKE 1 TABLET BY MOUTH 5 TIMES, AS NEEDED, TAKEN BY MOUTH.
     Route: 048
     Dates: start: 20071022, end: 20140325
  2. BACLOFEN [Suspect]
     Indication: MULTIPLE SCLEROSIS
     Dosage: TAKE 1 TABLET BY MOUTH 5 TIMES, AS NEEDED, TAKEN BY MOUTH.
     Route: 048
     Dates: start: 20071022, end: 20140325

REACTIONS (2)
  - Acne [None]
  - Drug hypersensitivity [None]
